FAERS Safety Report 4405467-0 (Version None)
Quarter: 2004Q3

REPORT INFORMATION
  Report Type: 
  Country: None (occurrence: None)
  Receive Date: 20040723
  Receipt Date: 20030904
  Transmission Date: 20050211
  Serious: No
  Sender: FDA-Public Use
  Company Number: US-GLAXOSMITHKLINE-A0424717A

PATIENT
  Age: 78 Year
  Sex: Male

DRUGS (5)
  1. AVANDIA [Suspect]
     Route: 048
     Dates: start: 20030826
  2. PRAVACHOL [Concomitant]
  3. LOTENSIN [Concomitant]
  4. ASPIRIN [Concomitant]
  5. ANTICOAGULANT [Concomitant]

REACTIONS (2)
  - BLOOD GLUCOSE FLUCTUATION [None]
  - DRUG INEFFECTIVE [None]
